FAERS Safety Report 17427926 (Version 23)
Quarter: 2025Q3

REPORT INFORMATION
  Report Type: Report from Study
  Country: US (occurrence: US)
  Receive Date: 20200217
  Receipt Date: 20250901
  Transmission Date: 20251021
  Serious: Yes (Hospitalization, Other)
  Sender: TAKEDA
  Company Number: US-SHIRE-US202005385

PATIENT
  Age: 46 Year
  Sex: Female
  Weight: 66 kg

DRUGS (47)
  1. HUMAN IMMUNOGLOBULIN G\HYALURONIDASE RECOMBINANT HUMAN [Suspect]
     Active Substance: HUMAN IMMUNOGLOBULIN G\HYALURONIDASE (HUMAN RECOMBINANT)
     Indication: Immunodeficiency common variable
     Dosage: 25 GRAM, Q4WEEKS
  2. HUMAN IMMUNOGLOBULIN G\HYALURONIDASE RECOMBINANT HUMAN [Suspect]
     Active Substance: HUMAN IMMUNOGLOBULIN G\HYALURONIDASE (HUMAN RECOMBINANT)
     Dosage: UNK, MONTHLY
  3. HUMAN IMMUNOGLOBULIN G\HYALURONIDASE RECOMBINANT HUMAN [Suspect]
     Active Substance: HUMAN IMMUNOGLOBULIN G\HYALURONIDASE (HUMAN RECOMBINANT)
     Dosage: 25 GRAM, Q4WEEKS
  4. SODIUM CHLORIDE [Concomitant]
     Active Substance: SODIUM CHLORIDE
  5. ACETAMINOPHEN [Concomitant]
     Active Substance: ACETAMINOPHEN
  6. NYSTATIN [Concomitant]
     Active Substance: NYSTATIN
  7. LAMICTAL [Concomitant]
     Active Substance: LAMOTRIGINE
  8. CARAFATE [Concomitant]
     Active Substance: SUCRALFATE
  9. BUSPIRONE HCL [Concomitant]
     Active Substance: BUSPIRONE HYDROCHLORIDE
  10. TOPAMAX [Concomitant]
     Active Substance: TOPIRAMATE
  11. LEVOTHYROXINE [Concomitant]
     Active Substance: LEVOTHYROXINE
  12. TIZANIDINE [Concomitant]
     Active Substance: TIZANIDINE
  13. PANTOPRAZOLE [Concomitant]
     Active Substance: PANTOPRAZOLE
  14. FENOFIBRATE [Concomitant]
     Active Substance: FENOFIBRATE
  15. ALBUTEROL SULFATE [Concomitant]
     Active Substance: ALBUTEROL SULFATE
  16. TYLENOL ARTHRITIS PAIN [Concomitant]
     Active Substance: ACETAMINOPHEN
     Indication: Product used for unknown indication
  17. LIDOCAINE [Concomitant]
     Active Substance: LIDOCAINE
  18. QUETIAPINE FUMARATE [Concomitant]
     Active Substance: QUETIAPINE FUMARATE
  19. Azo complete feminine balance [Concomitant]
  20. ZETIA [Concomitant]
     Active Substance: EZETIMIBE
  21. COMPAZINE [Concomitant]
     Active Substance: PROCHLORPERAZINE MALEATE
  22. MAXALT [Concomitant]
     Active Substance: RIZATRIPTAN BENZOATE
  23. PROMETHAZINE HYDROCHLORIDE [Concomitant]
     Active Substance: PROMETHAZINE HYDROCHLORIDE
  24. DIPHENHYDRAMINE HYDROCHLORIDE [Concomitant]
     Active Substance: DIPHENHYDRAMINE HYDROCHLORIDE
  25. AIMOVIG [Concomitant]
     Active Substance: ERENUMAB-AOOE
  26. HYDROXYZINE HYDROCHLORIDE [Concomitant]
     Active Substance: HYDROXYZINE HYDROCHLORIDE
  27. HYDROXYZINE [Concomitant]
     Active Substance: HYDROXYZINE HYDROCHLORIDE
  28. HYOSCYAMINE SULFATE [Concomitant]
     Active Substance: HYOSCYAMINE SULFATE
  29. DIFLUCAN [Concomitant]
     Active Substance: FLUCONAZOLE
  30. PAXIL [Concomitant]
     Active Substance: PAROXETINE HYDROCHLORIDE
  31. DIPHENHYDRAMINE [Concomitant]
     Active Substance: DIPHENHYDRAMINE
  32. EPINEPHRINE [Concomitant]
     Active Substance: EPINEPHRINE
  33. BUSPIRONE [Concomitant]
     Active Substance: BUSPIRONE HYDROCHLORIDE
  34. ALBUTEROL [Concomitant]
     Active Substance: ALBUTEROL
  35. NALTREXONE [Concomitant]
     Active Substance: NALTREXONE
  36. PRAVASTATIN [Concomitant]
     Active Substance: PRAVASTATIN
  37. IRON [Concomitant]
     Active Substance: IRON
  38. LASIX [Concomitant]
     Active Substance: FUROSEMIDE
  39. TRAZODONE [Concomitant]
     Active Substance: TRAZODONE HYDROCHLORIDE
  40. VITAMIN D2 [Concomitant]
     Active Substance: ERGOCALCIFEROL
  41. METOPROLOL TARTRATE [Concomitant]
     Active Substance: METOPROLOL TARTRATE
  42. PROMETHAZINE [Concomitant]
     Active Substance: PROMETHAZINE HYDROCHLORIDE
  43. EPINEPHRINE [Concomitant]
     Active Substance: EPINEPHRINE
  44. LEVOTHYROXINE SODIUM [Concomitant]
     Active Substance: LEVOTHYROXINE SODIUM
  45. PRAVASTATIN SODIUM [Concomitant]
     Active Substance: PRAVASTATIN SODIUM
  46. TIZANIDINE HYDROCHLORIDE [Concomitant]
     Active Substance: TIZANIDINE HYDROCHLORIDE
  47. PANTOPRAZOLE SODIUM [Concomitant]
     Active Substance: PANTOPRAZOLE SODIUM

REACTIONS (22)
  - Dactylitis [Unknown]
  - Abscess [Unknown]
  - Pleural infection [Unknown]
  - Pericarditis infective [Unknown]
  - Kidney infection [Unknown]
  - Chronic kidney disease [Unknown]
  - Nephrolithiasis [Unknown]
  - Sinusitis [Unknown]
  - Urinary tract infection [Unknown]
  - Bacterial infection [Unknown]
  - Influenza [Unknown]
  - Upper respiratory tract infection [Unknown]
  - Infection [Unknown]
  - Gastrointestinal ulcer [Unknown]
  - Helicobacter infection [Unknown]
  - Illness [Unknown]
  - Weight decreased [Unknown]
  - Cystitis [Unknown]
  - Product use issue [Unknown]
  - Insurance issue [Unknown]
  - Inappropriate schedule of product administration [Unknown]
  - Cough [Unknown]

NARRATIVE: CASE EVENT DATE: 20211214
